FAERS Safety Report 25416974 (Version 3)
Quarter: 2025Q3

REPORT INFORMATION
  Report Type: Spontaneous
  Country: EU (occurrence: EU)
  Receive Date: 20250610
  Receipt Date: 20250722
  Transmission Date: 20251021
  Serious: Yes (Hospitalization)
  Sender: MYLAN
  Company Number: EU-MMM-Otsuka-YRLOWG27

PATIENT
  Age: 54 Year
  Sex: Female

DRUGS (9)
  1. ARIPIPRAZOLE [Suspect]
     Active Substance: ARIPIPRAZOLE
     Indication: Delusional disorder, unspecified type
     Dosage: 15 MG, DAILY
     Dates: start: 20250131, end: 20250221
  2. ARIPIPRAZOLE [Suspect]
     Active Substance: ARIPIPRAZOLE
     Dosage: 5 MG, DAILY
     Dates: start: 20250105, end: 20250109
  3. ARIPIPRAZOLE [Suspect]
     Active Substance: ARIPIPRAZOLE
     Dosage: 10 MG, DAILY
     Dates: start: 20250110, end: 20250130
  4. ARIPIPRAZOLE [Suspect]
     Active Substance: ARIPIPRAZOLE
     Dosage: 10 MG, DAILY
     Dates: start: 20250222
  5. QUETIAPINE [Suspect]
     Active Substance: QUETIAPINE
     Indication: Delusional disorder, unspecified type
     Dosage: 25 MG, DAILY
     Dates: start: 20250111, end: 20250115
  6. QUETIAPINE [Suspect]
     Active Substance: QUETIAPINE
     Dosage: 50 MG, DAILY
     Dates: start: 20250116, end: 20250130
  7. QUETIAPINE [Suspect]
     Active Substance: QUETIAPINE
     Dosage: 25 MG, DAILY
     Dates: start: 20250131
  8. TELMISARTAN [Concomitant]
     Active Substance: TELMISARTAN
     Indication: Hypertension
     Dosage: 80 MG, DAILY
     Dates: start: 20250130
  9. HYDROCHLOROTHIAZIDE [Concomitant]
     Active Substance: HYDROCHLOROTHIAZIDE
     Indication: Diuretic therapy
     Dosage: 12.5 MG, DAILY
     Dates: start: 20250130

REACTIONS (2)
  - Headache [Recovered/Resolved]
  - Product use in unapproved indication [Unknown]

NARRATIVE: CASE EVENT DATE: 20250105
